FAERS Safety Report 8251618-X (Version None)
Quarter: 2012Q2

REPORT INFORMATION
  Report Type: 
  Country: None (occurrence: None)
  Receive Date: 20120402
  Receipt Date: 20111214
  Transmission Date: 20120825
  Serious: No
  Sender: FDA-Public Use
  Company Number: US-ABBOTT-11P-163-0885272-00

PATIENT
  Age: 57 Year
  Sex: Male
  Weight: 70.37 kg

DRUGS (9)
  1. LIPITOR [Concomitant]
     Indication: BLOOD CHOLESTEROL INCREASED
  2. VITAMINS NOS [Concomitant]
     Indication: VITAMIN SUPPLEMENTATION
  3. VERAPAMIL [Concomitant]
     Indication: CARDIAC DISORDER
  4. OXYCODONE HCL [Concomitant]
     Indication: PAIN
  5. ANDROGEL [Suspect]
     Indication: BLOOD TESTOSTERONE DECREASED
     Route: 061
  6. ANDROGEL [Suspect]
     Indication: BLOOD TESTOSTERONE DECREASED
     Dosage: PUMP, 1 IN 1 DAY
     Route: 061
  7. VALIUM [Concomitant]
     Indication: MUSCLE SPASMS
  8. CRESTOR [Concomitant]
     Indication: BLOOD CHOLESTEROL INCREASED
  9. MULTI-VITAMIN [Concomitant]
     Indication: VITAMIN SUPPLEMENTATION

REACTIONS (2)
  - DRUG ADMINISTERED AT INAPPROPRIATE SITE [None]
  - ALOPECIA [None]
